FAERS Safety Report 21490857 (Version 1)
Quarter: 2022Q4

REPORT INFORMATION
  Report Type: Spontaneous
  Country: DE (occurrence: DE)
  Receive Date: 20221021
  Receipt Date: 20221021
  Transmission Date: 20230113
  Serious: Yes (Other)
  Sender: FDA-Public Use
  Company Number: DE-ALKEM LABORATORIES LIMITED-DE-ALKEM-2022-10542

PATIENT
  Sex: Female

DRUGS (5)
  1. FINGOLIMOD [Suspect]
     Active Substance: FINGOLIMOD
     Indication: Multiple sclerosis
     Dosage: 0.5 MILLIGRAM, QD(EVERY 1 DAY) CAPSULE, HARD
     Route: 048
     Dates: start: 20180927, end: 20181025
  2. FINGOLIMOD [Suspect]
     Active Substance: FINGOLIMOD
     Dosage: 0.5 MILLIGRAM, QD (EVERY 1 DAY) CAPSULE, HARD
     Route: 048
     Dates: start: 20181106, end: 20190415
  3. FINGOLIMOD [Suspect]
     Active Substance: FINGOLIMOD
     Dosage: 0.5 MILLIGRAM, QD(EVERY 1 DAY)CAPSULE, HARD
     Route: 048
     Dates: start: 20190429
  4. DARIFENACIN HYDROBROMIDE [Concomitant]
     Active Substance: DARIFENACIN HYDROBROMIDE
     Indication: Stress urinary incontinence
     Dosage: 7.5 MILLIGRAM, QD (EVERY 1 DAY)TABLET (UNCOATED)
     Route: 048
     Dates: start: 20110718
  5. VENLAFAXINE [Concomitant]
     Active Substance: VENLAFAXINE HYDROCHLORIDE
     Indication: Depression
     Dosage: 75 MILLIGRAM, QD (EVERY 1 DAY)TABLET (UNCOATED)
     Route: 048
     Dates: start: 20160811

REACTIONS (5)
  - Lymphocyte count decreased [Recovered/Resolved]
  - Lymphocyte count decreased [Recovered/Resolved]
  - White blood cell count decreased [Unknown]
  - Sciatica [Unknown]
  - Muscle spasticity [Unknown]

NARRATIVE: CASE EVENT DATE: 20181025
